FAERS Safety Report 4498073-3 (Version None)
Quarter: 2004Q3

REPORT INFORMATION
  Report Type: 
  Country: None (occurrence: None)
  Receive Date: 20040927
  Receipt Date: 20040726
  Transmission Date: 20050211
  Serious: No
  Sender: FDA-Public Use
  Company Number: USA040773673

PATIENT
  Age: 5 Year
  Sex: Male
  Weight: 19 kg

DRUGS (4)
  1. STRATTERA [Suspect]
     Dosage: 25 MG IN THE MORNING
     Dates: start: 20040723
  2. ZYRTEC [Concomitant]
  3. BENADRYL [Concomitant]
  4. ALBUTEROL [Concomitant]

REACTIONS (4)
  - DRUG EFFECT DECREASED [None]
  - IRRITABILITY [None]
  - MOOD SWINGS [None]
  - SLEEP DISORDER [None]
